FAERS Safety Report 8003229-9 (Version None)
Quarter: 2011Q4

REPORT INFORMATION
  Report Type: 
  Country: None (occurrence: None)
  Receive Date: 20111222
  Receipt Date: 20111216
  Transmission Date: 20120403
  Serious: Yes (Hospitalization)
  Sender: FDA-Public Use
  Company Number: PHEH2011US011982

PATIENT
  Sex: Female

DRUGS (1)
  1. RECLAST [Suspect]
     Indication: OSTEOPOROSIS
     Dosage: 5 MG, ONCE/SINGLE DOSE
     Route: 042
     Dates: start: 20111213

REACTIONS (3)
  - PYREXIA [None]
  - MENTAL STATUS CHANGES [None]
  - INFLUENZA LIKE ILLNESS [None]
